FAERS Safety Report 12908807 (Version 2)
Quarter: 2016Q4

REPORT INFORMATION
  Report Type: Report from Study
  Country: US (occurrence: US)
  Receive Date: 20161103
  Receipt Date: 20161123
  Transmission Date: 20170207
  Serious: Yes (Other)
  Sender: FDA-Public Use
  Company Number: US-JAZZ-2016-US-021347

PATIENT
  Sex: Female

DRUGS (23)
  1. VYVANSE [Concomitant]
     Active Substance: LISDEXAMFETAMINE DIMESYLATE
     Indication: PRODUCT USE ISSUE
     Dosage: UNK
     Dates: start: 20121101, end: 201601
  2. LANSOPRAZOLE. [Concomitant]
     Active Substance: LANSOPRAZOLE
     Indication: PRODUCT USE ISSUE
     Dosage: UNK
     Dates: start: 20120301, end: 201604
  3. MELATONIN [Concomitant]
     Active Substance: MELATONIN
     Indication: PRODUCT USE ISSUE
     Dosage: UNK
     Dates: start: 20120301, end: 201610
  4. BIAXIN [Concomitant]
     Active Substance: CLARITHROMYCIN
     Indication: PRODUCT USE ISSUE
     Dosage: UNK
     Dates: end: 201610
  5. PROTONIX                           /00661201/ [Concomitant]
     Active Substance: OMEPRAZOLE
     Indication: PRODUCT USE ISSUE
  6. XYREM [Suspect]
     Active Substance: SODIUM OXYBATE
     Indication: NARCOLEPSY
     Dosage: 1.5 G, BID
     Route: 048
     Dates: start: 201303, end: 201303
  7. NUVIGIL [Concomitant]
     Active Substance: ARMODAFINIL
     Indication: PRODUCT USE ISSUE
     Dosage: UNK
     Dates: start: 20160111
  8. NUVIGIL [Concomitant]
     Active Substance: ARMODAFINIL
     Indication: PRODUCT USE ISSUE
     Dosage: UNK
     Dates: start: 20130201, end: 20160111
  9. NORGESTREL/ETHINYL ESTRADIOL [Concomitant]
     Active Substance: ETHINYL ESTRADIOL\NORGESTREL
  10. ALEVE [Concomitant]
     Active Substance: NAPROXEN SODIUM
     Indication: PRODUCT USE ISSUE
     Dosage: UNK
     Dates: start: 20150715
  11. PRAMIPEXOLE. [Concomitant]
     Active Substance: PRAMIPEXOLE
     Indication: PRODUCT USE ISSUE
     Dosage: UNK
     Dates: start: 20110801
  12. EFFEXOR [Concomitant]
     Active Substance: VENLAFAXINE HYDROCHLORIDE
     Indication: PRODUCT USE ISSUE
  13. XYREM [Suspect]
     Active Substance: SODIUM OXYBATE
     Dosage: DOSE ADJUSTMENTS
     Route: 048
     Dates: start: 201303, end: 201507
  14. AMPHETAMINE [Concomitant]
     Active Substance: AMPHETAMINE
     Indication: PRODUCT USE ISSUE
     Dosage: UNK
     Dates: start: 20130101, end: 201601
  15. QVAR [Concomitant]
     Active Substance: BECLOMETHASONE DIPROPIONATE
     Indication: PRODUCT USE ISSUE
     Dosage: UNK
     Dates: start: 20110301
  16. COMBIVENT [Concomitant]
     Active Substance: ALBUTEROL SULFATE\IPRATROPIUM BROMIDE
     Indication: PRODUCT USE ISSUE
  17. IRON  /00023505/ [Concomitant]
     Dosage: UNK
     Dates: start: 201608
  18. SINGULAIR [Concomitant]
     Active Substance: MONTELUKAST SODIUM
     Indication: PRODUCT USE ISSUE
     Dosage: UNK
     Dates: start: 201601
  19. IBUPROFEN. [Concomitant]
     Active Substance: IBUPROFEN
     Indication: PRODUCT USE ISSUE
     Dosage: UNK
     Dates: start: 20150715
  20. XYREM [Suspect]
     Active Substance: SODIUM OXYBATE
     Dosage: 4.5 G, BID
     Route: 048
     Dates: start: 201507
  21. TYLENOL [Concomitant]
     Active Substance: ACETAMINOPHEN
     Indication: PRODUCT USE ISSUE
     Dosage: UNK
     Dates: start: 20150715
  22. PROAIR HFA [Concomitant]
     Active Substance: ALBUTEROL SULFATE
     Indication: PRODUCT USE ISSUE
     Dosage: UNK
     Dates: start: 20110301
  23. LORATADINE. [Concomitant]
     Active Substance: LORATADINE
     Indication: PRODUCT USE ISSUE

REACTIONS (6)
  - Feeling abnormal [Unknown]
  - Ear injury [Recovered/Resolved]
  - Menorrhagia [Unknown]
  - Pre-existing condition improved [Unknown]
  - Pollakiuria [Not Recovered/Not Resolved]
  - Dizziness [Not Recovered/Not Resolved]
